FAERS Safety Report 7973794-6 (Version None)
Quarter: 2011Q4

REPORT INFORMATION
  Report Type: 
  Country: None (occurrence: None)
  Receive Date: 20111213
  Receipt Date: 20111128
  Transmission Date: 20120403
  Serious: Yes (Hospitalization)
  Sender: FDA-Public Use
  Company Number: PHHY2011DE105215

PATIENT
  Sex: Female

DRUGS (2)
  1. HALDOL [Concomitant]
     Dosage: 15 MG/ DAY
  2. CLOZAPINE [Suspect]
     Dosage: 275 MG /DAY

REACTIONS (8)
  - RESTLESSNESS [None]
  - ACUTE PSYCHOSIS [None]
  - ABORTION [None]
  - HAEMORRHAGE [None]
  - MATERNAL EXPOSURE DURING PREGNANCY [None]
  - THINKING ABNORMAL [None]
  - AKATHISIA [None]
  - DRUG INEFFECTIVE [None]
